FAERS Safety Report 5805951-9 (Version None)
Quarter: 2008Q3

REPORT INFORMATION
  Report Type: 
  Country: None (occurrence: None)
  Receive Date: 20080710
  Receipt Date: 20080630
  Transmission Date: 20090109
  Serious: Yes (Hospitalization)
  Sender: FDA-Public Use
  Company Number: US-ROCHE-570987

PATIENT
  Sex: Female

DRUGS (13)
  1. BONIVA [Suspect]
     Indication: OSTEOPOROSIS
     Dosage: MISSED APRIL DOSE DUE TO HOSPITALISATION
     Route: 065
     Dates: start: 20070601
  2. COUMADIN [Concomitant]
     Dosage: DOSING: 4.5 MG 5 DAYS/ WEEK AND 3.0 MG 2 DAYS PER WEEK
  3. DETROL LA [Concomitant]
  4. GELATIN [Concomitant]
     Dosage: DRUG REPORTED: GELATIN CAPS
  5. STRATTERA [Concomitant]
     Dosage: DRUG REPORTED: STRATERA
  6. ASPIRIN [Concomitant]
  7. LISINOPRIL [Concomitant]
  8. PRILOSEC [Concomitant]
  9. CHONDROITIN/GLUCOSAMINE [Concomitant]
  10. METROPOLOL COMP [Concomitant]
     Dosage: DRUG REPORTED: METROPOLOL
  11. LIPITOR [Concomitant]
  12. MULTI-VITAMIN [Concomitant]
  13. LAXATIVE NOS [Concomitant]
     Dosage: DRUG REPORTED: LAXATIVES

REACTIONS (1)
  - AORTIC VALVE SCLEROSIS [None]
